FAERS Safety Report 14529207 (Version 1)
Quarter: 2018Q1

REPORT INFORMATION
  Report Type: Spontaneous
  Country: FR (occurrence: FR)
  Receive Date: 20180214
  Receipt Date: 20180214
  Transmission Date: 20180509
  Serious: Yes (Hospitalization)
  Sender: FDA-Public Use
  Company Number: FR-KRKA, D.D., NOVO MESTO-2041936

PATIENT
  Age: 37 Year
  Sex: Female

DRUGS (10)
  1. STAGID [Concomitant]
     Active Substance: METFORMIN PAMOATE
  2. LANSOPRAZOLE. [Suspect]
     Active Substance: LANSOPRAZOLE
     Indication: HYPERCHOLESTEROLAEMIA
  3. ASPIRINE PROTECT [Concomitant]
     Active Substance: ASPIRIN
  4. HUMALOG [Concomitant]
     Active Substance: INSULIN LISPRO
  5. NEBIVOLOL. [Concomitant]
     Active Substance: NEBIVOLOL
  6. LORAZEPAM. [Concomitant]
     Active Substance: LORAZEPAM
  7. STAGID [Concomitant]
     Active Substance: METFORMIN PAMOATE
     Route: 048
  8. TOVIAZ [Concomitant]
     Active Substance: FESOTERODINE FUMARATE
  9. ALDACTAZINE [Concomitant]
     Active Substance: ALTHIAZIDE\SPIRONOLACTONE
     Route: 048
  10. VENLAFAXINE [Suspect]
     Active Substance: VENLAFAXINE HYDROCHLORIDE

REACTIONS (2)
  - Myalgia [Not Recovered/Not Resolved]
  - Product use in unapproved indication [Unknown]
